FAERS Safety Report 9188388 (Version 1)
Quarter: 2012Q4

REPORT INFORMATION
  Report Type: 
  Country: MX (occurrence: MX)
  Receive Date: 20121205
  Receipt Date: 20121205
  Transmission Date: 20130627
  Serious: Yes (Death, Hospitalization)
  Sender: FDA-Public Use
  Company Number: MX-JNJFOC-20121115031

PATIENT
  Age: 81 Year
  Sex: Female
  Weight: 38 kg

DRUGS (1)
  1. XARELTO [Suspect]
     Indication: DEEP VEIN THROMBOSIS
     Route: 058
     Dates: start: 2012

REACTIONS (2)
  - Respiratory failure [Fatal]
  - Respiratory disorder [Unknown]
